FAERS Safety Report 9884421 (Version 1)
Quarter: 2014Q1

REPORT INFORMATION
  Report Type: Not Available
  Country: FR (occurrence: FR)
  Receive Date: 20140210
  Receipt Date: 20140210
  Transmission Date: 20141002
  Serious: Yes (Hospitalization)
  Sender: FDA-Public Use
  Company Number: FR-ASTELLAS-2014US001323

PATIENT
  Age: 54 Year
  Sex: Male

DRUGS (5)
  1. TARCEVA [Suspect]
     Indication: LUNG ADENOCARCINOMA
     Dosage: 1 DF, UID/QD
     Route: 048
     Dates: start: 20121127, end: 20130711
  2. FRAGMINE [Suspect]
     Indication: PRODUCT USED FOR UNKNOWN INDICATION
     Dosage: 5000 IU, UID/QD
     Route: 058
     Dates: start: 20130702, end: 20130711
  3. FRAGMINE [Suspect]
     Dosage: 5000 IU, UID/QD
     Route: 058
     Dates: start: 20130715
  4. XATRAL [Suspect]
     Indication: PRODUCT USED FOR UNKNOWN INDICATION
     Dosage: 10 MG, UID/QD
     Route: 048
     Dates: start: 20130703, end: 20130711
  5. INEXIUM /01479302/ [Suspect]
     Indication: PRODUCT USED FOR UNKNOWN INDICATION
     Dosage: 40 MG, UID/QD
     Route: 048
     Dates: start: 20130708, end: 20130711

REACTIONS (1)
  - Thrombocytopenia [Recovered/Resolved]
